FAERS Safety Report 24616113 (Version 1)
Quarter: 2024Q4

REPORT INFORMATION
  Report Type: Spontaneous
  Country: US (occurrence: US)
  Receive Date: 20241113
  Receipt Date: 20241113
  Transmission Date: 20250115
  Serious: No
  Sender: AMGEN
  Company Number: US-AMGEN-USASP2024221557

PATIENT

DRUGS (1)
  1. PREDNISONE [Suspect]
     Active Substance: PREDNISONE
     Indication: Asthma
     Dosage: UNK, QD, (6-12MG OR 12+MG)
     Route: 065

REACTIONS (4)
  - Gastrointestinal disorder [Unknown]
  - Cardiovascular disorder [Unknown]
  - Mental disorder [Unknown]
  - Infection [Unknown]
